FAERS Safety Report 14887224 (Version 1)
Quarter: 2018Q2

REPORT INFORMATION
  Report Type: Spontaneous
  Country: US (occurrence: US)
  Receive Date: 20180513
  Receipt Date: 20180513
  Transmission Date: 20180711
  Serious: No
  Sender: FDA-Public Use
  Company Number: US-JNJFOC-20180425543

PATIENT
  Age: 4 Month
  Sex: Female
  Weight: 7.71 kg

DRUGS (3)
  1. INFANTS TYLENOL [Suspect]
     Active Substance: ACETAMINOPHEN
     Indication: MALAISE
     Dosage: 0.5ML-1ML
     Route: 048
     Dates: start: 20180418, end: 20180418
  2. INFANTS TYLENOL [Suspect]
     Active Substance: ACETAMINOPHEN
     Indication: SINUS CONGESTION
     Dosage: 0.5ML-1ML
     Route: 048
     Dates: start: 20180418, end: 20180418
  3. INFANTS TYLENOL [Suspect]
     Active Substance: ACETAMINOPHEN
     Indication: DISCOMFORT
     Dosage: 0.5ML-1ML
     Route: 048
     Dates: start: 20180418, end: 20180418

REACTIONS (3)
  - Syringe issue [Unknown]
  - Product use in unapproved indication [Unknown]
  - Regurgitation [Unknown]

NARRATIVE: CASE EVENT DATE: 20180418
